FAERS Safety Report 4384629-5 (Version None)
Quarter: 2004Q2

REPORT INFORMATION
  Report Type: 
  Country: None (occurrence: None)
  Receive Date: 20040625
  Receipt Date: 20030910
  Transmission Date: 20050107
  Serious: No
  Sender: FDA-Public Use
  Company Number: US-BRISTOL-MYERS SQUIBB COMPANY-12379392

PATIENT
  Age: 83 Year
  Sex: Male
  Weight: 75 kg

DRUGS (14)
  1. SINEMET [Suspect]
     Indication: PARKINSON'S DISEASE
     Dosage: 25/100MG(BRAND) ^COUPLE OF DAYS^ + THEN STOPPED.ON 9/8/03 STARTED ^GENERIC^ 25/100MG CR BID
     Route: 048
     Dates: start: 20030701
  2. CARBIDOPA + LEVODOPA TABS 25MG/100MG [Suspect]
     Indication: PARKINSON'S DISEASE
     Dosage: 25/100MG; 1 TAB IN THE MORNING + 1 IN EVENING, APPROX. 6-7 MONTHS AGO.
     Route: 048
  3. FLOMAX [Concomitant]
  4. VITAMIN C [Concomitant]
  5. VITAMIN E [Concomitant]
  6. VITAMIN B COMPLEX CAP [Concomitant]
  7. M.V.I. [Concomitant]
  8. CALCIUM [Concomitant]
  9. CHONDROITIN + GLUCOSAMINE [Concomitant]
  10. ONE-A-DAY [Concomitant]
  11. Q 10 [Concomitant]
  12. WHEY + SOY LECITHIN [Concomitant]
     Dosage: 1 SCOOPFUL RECONSTITUED WITH ORANGE JUICE
  13. ANTIBIOTICS [Concomitant]
  14. MORNIFLUMATE [Concomitant]

REACTIONS (3)
  - DIARRHOEA [None]
  - DIZZINESS [None]
  - SKIN ODOUR ABNORMAL [None]
